FAERS Safety Report 7909063-X (Version None)
Quarter: 2011Q4

REPORT INFORMATION
  Report Type: 
  Country: None (occurrence: None)
  Receive Date: 20111111
  Receipt Date: 20111103
  Transmission Date: 20120403
  Serious: Yes (Hospitalization)
  Sender: FDA-Public Use
  Company Number: NZ-B.I. PHARMACEUTICALS,INC./RIDGEFIELD-2011-AU-00659AU

PATIENT
  Age: 90 Year
  Sex: Female

DRUGS (2)
  1. WARFARIN SODIUM [Concomitant]
  2. PRADAXA [Suspect]

REACTIONS (3)
  - EXERCISE TOLERANCE DECREASED [None]
  - CARDIAC FAILURE ACUTE [None]
  - DYSPNOEA [None]
